FAERS Safety Report 10205923 (Version 2)
Quarter: 2014Q2

REPORT INFORMATION
  Report Type: Spontaneous
  Country: US (occurrence: US)
  Receive Date: 20140530
  Receipt Date: 20140610
  Transmission Date: 20141212
  Serious: No
  Sender: FDA-Public Use
  Company Number: US-009507513-1405USA011749

PATIENT
  Sex: Female

DRUGS (5)
  1. FOLLISTIM [Suspect]
     Indication: INFERTILITY
  2. GONADOTROPIN, CHORIONIC [Suspect]
  3. GONAL-F [Suspect]
  4. MENOPUR [Suspect]
  5. GANIRELIX ACETATE INJECTION [Suspect]
     Indication: INFERTILITY

REACTIONS (1)
  - Drug ineffective [Unknown]
